FAERS Safety Report 17957105 (Version 3)
Quarter: 2020Q3

REPORT INFORMATION
  Report Type: Report from Study
  Country: US (occurrence: US)
  Receive Date: 20200629
  Receipt Date: 20200804
  Transmission Date: 20201103
  Serious: Yes (Other)
  Sender: FDA-Public Use
  Company Number: US-BIOGEN-2020BI00890417

PATIENT
  Age: 59 Year
  Sex: Male
  Weight: 92.16 kg

DRUGS (21)
  1. TYSABRI [Suspect]
     Active Substance: NATALIZUMAB
     Indication: MULTIPLE SCLEROSIS
     Dosage: 300 MG/ 15 ML IN 100 ML OF 0.9% NACL OVER 1 HR, MONTHLY
     Route: 065
     Dates: start: 20101230
  2. NUEDEXTA [Concomitant]
     Active Substance: DEXTROMETHORPHAN HYDROBROMIDE\QUINIDINE SULFATE
     Indication: AFFECT LABILITY
     Dosage: 20?10 MG
     Route: 065
     Dates: start: 20190121
  3. AMPYRA [Suspect]
     Active Substance: DALFAMPRIDINE
     Indication: GAIT DISTURBANCE
     Dosage: 10 MILLIGRAM, BID
     Route: 048
     Dates: start: 20190703
  4. NEURONTIN [Concomitant]
     Active Substance: GABAPENTIN
     Indication: NEURALGIA
     Route: 065
  5. BACLOFEN. [Concomitant]
     Active Substance: BACLOFEN
     Indication: MUSCLE SPASTICITY
     Route: 048
  6. DALFAMPRIDINE. [Suspect]
     Active Substance: DALFAMPRIDINE
     Indication: PRODUCT USED FOR UNKNOWN INDICATION
     Route: 048
     Dates: start: 20190913
  7. EXELON [Concomitant]
     Active Substance: RIVASTIGMINE TARTRATE
     Indication: COGNITIVE DISORDER
     Route: 062
     Dates: start: 20190703
  8. TYSABRI [Suspect]
     Active Substance: NATALIZUMAB
     Dosage: 300 MG/ 15 ML IN 100 ML OF 0.9% NACL OVER 1 HR, MONTHLY
     Route: 065
     Dates: start: 2013
  9. LAMICTAL [Concomitant]
     Active Substance: LAMOTRIGINE
     Indication: SEIZURE
     Route: 065
  10. GABAPENTIN. [Concomitant]
     Active Substance: GABAPENTIN
     Indication: PRODUCT USED FOR UNKNOWN INDICATION
     Dosage: 300 MILLIGRAM, TID
     Route: 048
     Dates: start: 20190305
  11. DALFAMPRIDINE. [Suspect]
     Active Substance: DALFAMPRIDINE
     Route: 065
     Dates: start: 20200117
  12. BACLOFEN. [Concomitant]
     Active Substance: BACLOFEN
     Route: 048
  13. AMPYRA [Suspect]
     Active Substance: DALFAMPRIDINE
     Dosage: 10 MILLIGRAM, BID
     Route: 065
     Dates: start: 20190913
  14. EXELON [Concomitant]
     Active Substance: RIVASTIGMINE TARTRATE
     Dosage: 9.5 MG/ 24 HR TRANSDERMAL PATCH ONCE DAILY, DO NOT APPLY TO SAME AREA MORE THAN ONCE EVERY 14 DAYS
     Route: 062
     Dates: start: 20190703
  15. EXELON [Concomitant]
     Active Substance: RIVASTIGMINE TARTRATE
     Route: 062
  16. LAMICTAL [Concomitant]
     Active Substance: LAMOTRIGINE
     Route: 048
     Dates: start: 20190920
  17. AMITRIPTYLINE [Concomitant]
     Active Substance: AMITRIPTYLINE
     Indication: NEURALGIA
     Route: 065
     Dates: start: 20190709
  18. VITAMIN D [Concomitant]
     Active Substance: VITAMIN D NOS
     Indication: PRODUCT USED FOR UNKNOWN INDICATION
     Route: 065
  19. AMPYRA [Suspect]
     Active Substance: DALFAMPRIDINE
     Route: 065
     Dates: end: 20200611
  20. AMPYRA [Suspect]
     Active Substance: DALFAMPRIDINE
     Dosage: 10 MILLIGRAM, BID
     Route: 048
     Dates: end: 20200622
  21. OMEPRAZOLE. [Concomitant]
     Active Substance: OMEPRAZOLE
     Indication: PRODUCT USED FOR UNKNOWN INDICATION
     Route: 048

REACTIONS (9)
  - Night sweats [Unknown]
  - Erythema [Unknown]
  - Bradyphrenia [Unknown]
  - Pyoderma gangrenosum [Recovered/Resolved]
  - Orthosis user [Not Recovered/Not Resolved]
  - Contraindicated product administered [Unknown]
  - Eye pain [Unknown]
  - Condition aggravated [Unknown]
  - Balance disorder [Unknown]

NARRATIVE: CASE EVENT DATE: 201912
